FAERS Safety Report 5767421-6 (Version None)
Quarter: 2008Q2

REPORT INFORMATION
  Report Type: 
  Country: None (occurrence: None)
  Receive Date: 20080612
  Receipt Date: 20080606
  Transmission Date: 20081010
  Serious: Yes (Death)
  Sender: FDA-Public Use
  Company Number: US-PURDUE-USA_2008_0033126

PATIENT
  Age: 53 Year
  Sex: Female
  Weight: 59 kg

DRUGS (3)
  1. OXYCODONE HCL [Suspect]
     Indication: PAIN
     Dosage: UNK UNK, UNK
     Route: 048
  2. HYDROCODONE [Suspect]
     Indication: PAIN
     Dosage: UNK UNK, UNK
     Route: 048
  3. ETHANOL [Suspect]
     Indication: DRUG USE FOR UNKNOWN INDICATION
     Dosage: UNK OTHER, UNK
     Route: 048

REACTIONS (2)
  - MULTIPLE INJURIES [None]
  - ROAD TRAFFIC ACCIDENT [None]
